FAERS Safety Report 17943038 (Version 6)
Quarter: 2021Q4

REPORT INFORMATION
  Report Type: Report from Study
  Country: CA (occurrence: CA)
  Receive Date: 20200625
  Receipt Date: 20211227
  Transmission Date: 20220303
  Serious: Yes (Other)
  Sender: FDA-Public Use
  Company Number: PHHY2016CA024654

PATIENT
  Sex: Male

DRUGS (7)
  1. ZOMETA [Suspect]
     Active Substance: ZOLEDRONIC ACID
     Indication: Plasma cell myeloma
     Dosage: 4 MG, Q3MO
     Route: 042
  2. ZOMETA [Suspect]
     Active Substance: ZOLEDRONIC ACID
     Dosage: UNK
     Route: 042
     Dates: start: 20200619
  3. ZOMETA [Suspect]
     Active Substance: ZOLEDRONIC ACID
     Dosage: 4 MG, QMO
     Route: 042
     Dates: start: 20160204
  4. DARZALEX [Concomitant]
     Active Substance: DARATUMUMAB
     Indication: Plasma cell myeloma
     Dosage: UNK (EVERY THURSDAY)
     Route: 042
  5. REVLIMID [Concomitant]
     Active Substance: LENALIDOMIDE
     Indication: Product used for unknown indication
     Dosage: 10 MG, QD (FOR 3 WEEKS)
     Route: 065
  6. TYLENOL [Concomitant]
     Active Substance: ACETAMINOPHEN
     Indication: Product used for unknown indication
     Dosage: UNK
     Route: 065
  7. BENADRYL [Concomitant]
     Active Substance: DIPHENHYDRAMINE HYDROCHLORIDE
     Indication: Product used for unknown indication
     Dosage: UNK
     Route: 065

REACTIONS (20)
  - Metastases to lung [Unknown]
  - Neuropathy peripheral [Unknown]
  - Bone pain [Unknown]
  - Mobility decreased [Unknown]
  - General physical health deterioration [Unknown]
  - Inappropriate schedule of product administration [Unknown]
  - Dysuria [Unknown]
  - Fall [Unknown]
  - Contusion [Unknown]
  - Blood creatine increased [Unknown]
  - Abdominal discomfort [Unknown]
  - Constipation [Unknown]
  - Joint swelling [Unknown]
  - Blood calcium decreased [Unknown]
  - Anxiety [Unknown]
  - Weight decreased [Unknown]
  - Chest pain [Unknown]
  - Decreased appetite [Unknown]
  - Back pain [Unknown]
  - Urine output decreased [Unknown]

NARRATIVE: CASE EVENT DATE: 20170101
